FAERS Safety Report 7853651-6 (Version None)
Quarter: 2011Q4

REPORT INFORMATION
  Report Type: 
  Country: None (occurrence: None)
  Receive Date: 20111026
  Receipt Date: 20111017
  Transmission Date: 20120403
  Serious: Yes (Other)
  Sender: FDA-Public Use
  Company Number: US-PFIZER INC-2011259815

PATIENT
  Sex: Female
  Weight: 60.32 kg

DRUGS (5)
  1. METHOTREXATE [Interacting]
     Indication: RHEUMATOID ARTHRITIS
     Dosage: UNK
  2. SULFACETAMIDE [Interacting]
     Indication: OPEN WOUND
     Dosage: UNK
     Dates: start: 20110514, end: 20110522
  3. HUMIRA [Suspect]
     Indication: RHEUMATOID ARTHRITIS
     Dosage: 40 MG, UNK
     Dates: start: 20090801, end: 20110401
  4. CELECOXIB [Interacting]
     Indication: RASH
     Dosage: UNK
  5. ENBREL [Interacting]
     Indication: RHEUMATOID ARTHRITIS
     Dosage: UNK
     Dates: start: 20110506, end: 20110727

REACTIONS (14)
  - DRUG INTERACTION [None]
  - FALL [None]
  - TREMOR [None]
  - JOINT STIFFNESS [None]
  - ALOPECIA [None]
  - PSORIASIS [None]
  - OPEN WOUND [None]
  - WEIGHT DECREASED [None]
  - RASH [None]
  - CONTUSION [None]
  - DRUG INEFFECTIVE [None]
  - IMPAIRED HEALING [None]
  - RHEUMATOID ARTHRITIS [None]
  - MEMORY IMPAIRMENT [None]
